FAERS Safety Report 6340317-7 (Version None)
Quarter: 2009Q3

REPORT INFORMATION
  Report Type: 
  Country: None (occurrence: None)
  Receive Date: 20090902
  Receipt Date: 20090824
  Transmission Date: 20100115
  Serious: Yes (Other)
  Sender: FDA-Public Use
  Company Number: GXKR2009JP08988

PATIENT
  Age: 66 Year
  Sex: Female

DRUGS (4)
  1. RIFAMPICIN [Suspect]
     Indication: STAPHYLOCOCCAL INFECTION
     Dosage: 450 MG, ORAL
     Route: 048
     Dates: start: 20090425, end: 20090811
  2. LASIX [Suspect]
     Indication: CARDIAC FAILURE
     Dosage: 80 MG, ORAL
     Route: 048
     Dates: start: 20090514
  3. ALDACTONE [Suspect]
     Indication: CARDIAC FAILURE
     Dosage: 25 MG, ORAL
     Route: 048
     Dates: start: 20090612
  4. BACTRIM [Concomitant]

REACTIONS (1)
  - HYPOKALAEMIA [None]
